FAERS Safety Report 7098637-7 (Version None)
Quarter: 2010Q4

REPORT INFORMATION
  Report Type: 
  Country: None (occurrence: None)
  Receive Date: 20101112
  Receipt Date: 20101104
  Transmission Date: 20110411
  Serious: Yes (Other)
  Sender: FDA-Public Use
  Company Number: US-JNJFOC-20101100449

PATIENT
  Sex: Female

DRUGS (1)
  1. DOXIL [Suspect]
     Indication: OVARIAN CANCER
     Route: 042

REACTIONS (5)
  - CONSTIPATION [None]
  - DYSPHAGIA [None]
  - RASH [None]
  - STOMATITIS [None]
  - VULVOVAGINAL DRYNESS [None]
